FAERS Safety Report 7690304-1 (Version None)
Quarter: 2011Q3

REPORT INFORMATION
  Report Type: 
  Country: None (occurrence: None)
  Receive Date: 20110812
  Receipt Date: 20110810
  Transmission Date: 20111222
  Serious: Yes (Other)
  Sender: FDA-Public Use
  Company Number: SP03722

PATIENT
  Age: 84 Year
  Sex: Female

DRUGS (11)
  1. CARVEDILOL [Concomitant]
  2. ETHYL ICOSAPENTATE [Concomitant]
  3. ALFACALCIDOL [Concomitant]
  4. VALSARTAN [Concomitant]
  5. FLAVIN ADENINE DINUCLEOTIDE [Concomitant]
  6. VISICOL [Suspect]
     Indication: BOWEL PREPARATION
     Dosage: (50 GM), ORAL
     Route: 048
     Dates: start: 20110517, end: 20110517
  7. ROSUVASTATIN [Concomitant]
  8. ASPIRIN [Concomitant]
  9. ETIZOLAM [Concomitant]
  10. SODIUM PICOSULFATE [Concomitant]
  11. DOXAZOSIN MESYLATE [Concomitant]

REACTIONS (2)
  - RENAL FAILURE ACUTE [None]
  - CARDIOMEGALY [None]
